FAERS Safety Report 6141740-6 (Version None)
Quarter: 2009Q2

REPORT INFORMATION
  Report Type: 
  Country: None (occurrence: None)
  Receive Date: 20090402
  Receipt Date: 20080903
  Transmission Date: 20091009
  Serious: No
  Sender: FDA-Public Use
  Company Number: US-ABBOTT-08P-163-0457154-00

PATIENT
  Sex: Female
  Weight: 69.008 kg

DRUGS (5)
  1. LUPRON DEPOT [Suspect]
     Indication: ENDOMETRIOSIS
     Route: 030
     Dates: start: 19910101, end: 20040101
  2. LUPRON DEPOT [Suspect]
     Indication: ENDOMETRIOSIS
     Route: 030
     Dates: start: 20040101, end: 20050401
  3. ZOLPIDEM TARTRATE [Concomitant]
     Indication: INSOMNIA
     Route: 048
  4. IBUPROFEN [Concomitant]
     Indication: MIGRAINE
     Dosage: NOT REPORTED
     Route: 048
  5. PHRENILIN [Concomitant]
     Indication: MIGRAINE
     Dosage: 650/50 MG
     Route: 048

REACTIONS (9)
  - ARTHRALGIA [None]
  - BONE MARROW OEDEMA SYNDROME [None]
  - COLD SWEAT [None]
  - DYSMORPHISM [None]
  - HOT FLUSH [None]
  - MIGRAINE [None]
  - MOOD SWINGS [None]
  - MYALGIA [None]
  - OSTEOPOROSIS [None]
